FAERS Safety Report 5056402-6 (Version None)
Quarter: 2006Q3

REPORT INFORMATION
  Report Type: 
  Country: None (occurrence: None)
  Receive Date: 20060717
  Receipt Date: 20060707
  Transmission Date: 20061208
  Serious: Yes (Other)
  Sender: FDA-Public Use
  Company Number: 111426ISR

PATIENT
  Sex: Female

DRUGS (2)
  1. DOXYCYCLINE HCL [Suspect]
     Indication: BLIGHTED OVUM
     Dosage: 200 MILLIGRAMS
     Route: 048
     Dates: start: 20051012, end: 20051019
  2. CO-DYDRAMOL [Concomitant]

REACTIONS (1)
  - CONVULSION [None]
